FAERS Safety Report 9108886 (Version 1)
Quarter: 2013Q1

REPORT INFORMATION
  Report Type: Spontaneous
  Country: US (occurrence: US)
  Receive Date: 20130222
  Receipt Date: 20130222
  Transmission Date: 20140127
  Serious: Yes (Other)
  Sender: FDA-Public Use
  Company Number: US-UPSHER-SMITH LABORATORIES, INC.-13000534

PATIENT
  Age: 68 Year
  Sex: Female

DRUGS (7)
  1. DIVIGEL [Suspect]
     Indication: MENOPAUSAL DEPRESSION
     Dosage: 1 MG, QD
     Route: 061
     Dates: start: 201107
  2. DIVIGEL [Suspect]
     Indication: ANXIETY
  3. PREMARIN [Suspect]
     Indication: MENOPAUSAL DEPRESSION
     Dosage: UNK
     Dates: end: 201107
  4. PREMARIN [Suspect]
     Indication: ANXIETY
  5. PROVERA [Suspect]
     Indication: PREVENTION OF ENDOMETRIAL HYPERPLASIA
     Dosage: UNK
     Dates: end: 201107
  6. PROMETRIUM [Suspect]
     Indication: PREVENTION OF ENDOMETRIAL HYPERPLASIA
     Dosage: 200 MG, ONCE DAILY ON DAYS 1-12 EACH MONTH
     Route: 048
     Dates: start: 201107
  7. PROMETRIUM [Suspect]
     Dosage: 200 MG,  ONCE DAILY ON DAYS 1-12 EVERY 3 MONTHS
     Route: 048
     Dates: start: 201212, end: 20130219

REACTIONS (1)
  - Endometrial cancer stage I [Not Recovered/Not Resolved]
